FAERS Safety Report 8778389 (Version 2)
Quarter: 2013Q4

REPORT INFORMATION
  Report Type: Report from Study
  Country: JP (occurrence: JP)
  Receive Date: 20120911
  Receipt Date: 20131108
  Transmission Date: 20140711
  Serious: Yes (Other)
  Sender: FDA-Public Use
  Company Number: JP-009507513-2012SP005337

PATIENT
  Age: 55 Year
  Sex: Male
  Weight: 69 kg

DRUGS (7)
  1. PEGINTERFERON ALFA-2B [Suspect]
     Indication: HEPATITIS C
     Dosage: 1.44 ?G/KG, QW
     Route: 058
     Dates: start: 20120111, end: 20120118
  2. PEGINTERFERON ALFA-2B [Suspect]
     Dosage: 0.72 ?G/KG, QW
     Route: 058
     Dates: start: 20120125, end: 20120125
  3. PEGINTERFERON ALFA-2B [Suspect]
     Dosage: 1.45 MICROGRAM PER KILOGRAM, QW
     Route: 058
     Dates: start: 20120612, end: 20120612
  4. REBETOL [Suspect]
     Indication: HEPATITIS C
     Dosage: 800 MG, QD
     Route: 048
     Dates: start: 20120111, end: 20120125
  5. REBETOL [Suspect]
     Dosage: 800 MG, QD
     Route: 048
     Dates: start: 20120612, end: 20120625
  6. TELAVIC [Suspect]
     Indication: HEPATITIS C
     Dosage: 2250 MG, QD
     Route: 048
     Dates: start: 20120111, end: 20120125
  7. URSO [Concomitant]
     Dosage: UPDATE (12MAR2012): FORMULATION: POR
     Route: 048

REACTIONS (7)
  - Neutropenia [Recovering/Resolving]
  - Thrombocytopenia [Recovering/Resolving]
  - Leukopenia [Recovering/Resolving]
  - Pyrexia [Recovered/Resolved]
  - Oropharyngeal discomfort [Recovered/Resolved]
  - Erythema [Recovering/Resolving]
  - Neutrophil count decreased [Recovering/Resolving]
